FAERS Safety Report 12125503 (Version 2)
Quarter: 2019Q2

REPORT INFORMATION
  Report Type: Spontaneous
  Country: US (occurrence: US)
  Receive Date: 20160229
  Receipt Date: 20190429
  Transmission Date: 20190711
  Serious: Yes (Other)
  Sender: FDA-Public Use
  Company Number: US-ABBVIE-15P-163-1472005-00

PATIENT
  Age: 45 Year
  Sex: Male

DRUGS (1)
  1. ANDROGEL [Suspect]
     Active Substance: TESTOSTERONE
     Indication: ANDROGEN REPLACEMENT THERAPY
     Dosage: 2 PUMPS PER DAY
     Route: 061
     Dates: start: 2012, end: 201309

REACTIONS (6)
  - Skin mass [Recovering/Resolving]
  - Eye contusion [Recovering/Resolving]
  - Bronchitis [Unknown]
  - Sinusitis [Unknown]
  - Cerebrovascular accident [Unknown]
  - Ear pain [Unknown]

NARRATIVE: CASE EVENT DATE: 20130927
